FAERS Safety Report 7896399-4 (Version None)
Quarter: 2011Q4

REPORT INFORMATION
  Report Type: 
  Country: None (occurrence: None)
  Receive Date: 20111104
  Receipt Date: 20111104
  Transmission Date: 20120403
  Serious: Yes (Other)
  Sender: FDA-Public Use
  Company Number: None

PATIENT
  Sex: Female
  Weight: 58.0604 kg

DRUGS (1)
  1. LOTREL [Suspect]
     Indication: HYPERTENSION
     Dosage: 5/10 MG 1 TAB BID ORAL
     Route: 048
     Dates: start: 20081016, end: 20081202

REACTIONS (4)
  - SKIN IRRITATION [None]
  - PRURITUS [None]
  - RASH [None]
  - PRODUCT SUBSTITUTION ISSUE [None]
